FAERS Safety Report 10216754 (Version 2)
Quarter: 2014Q2

REPORT INFORMATION
  Report Type: Spontaneous
  Country: JP (occurrence: JP)
  Receive Date: 20140604
  Receipt Date: 20140620
  Transmission Date: 20141212
  Serious: Yes (Other)
  Sender: FDA-Public Use
  Company Number: JP-PFIZER INC-2014150835

PATIENT
  Age: 37 Year
  Sex: Male

DRUGS (2)
  1. LYRICA [Suspect]
     Indication: MONONEUROPATHY MULTIPLEX
     Dosage: 75 MG, 2X/DAY
     Route: 048
     Dates: start: 20140521, end: 20140602
  2. IMMUNOGLOBULINS [Concomitant]
     Dosage: 400 MG/KG, UNK
     Route: 042
     Dates: start: 20140526, end: 20140528

REACTIONS (2)
  - Bone marrow failure [Unknown]
  - Neutropenia [Recovered/Resolved]
